FAERS Safety Report 4382163-X (Version None)
Quarter: 2004Q2

REPORT INFORMATION
  Report Type: 
  Country: None (occurrence: None)
  Receive Date: 20040618
  Receipt Date: 20040618
  Transmission Date: 20050107
  Serious: Yes (Other)
  Sender: FDA-Public Use
  Company Number: None

PATIENT
  Age: 39 Year
  Sex: Male
  Weight: 58.4 kg

DRUGS (17)
  1. OMEPRAZOLE [Suspect]
  2. LOPERAMIDE HCL [Concomitant]
  3. GABAPENTIN [Concomitant]
  4. SERTRALINE HCL [Concomitant]
  5. SIMVASTATIN [Concomitant]
  6. NAPROXEN [Concomitant]
  7. UREA [Concomitant]
  8. GATIFLOXACIN [Concomitant]
  9. CATHETER [Concomitant]
  10. LEG BAG [Concomitant]
  11. TERAZOSIN HCL [Concomitant]
  12. FLUNISOLIDE [Concomitant]
  13. MICONAZOLE NITRATE [Concomitant]
  14. KETOCONAZOLE [Concomitant]
  15. ACETAMINOPHEN [Concomitant]
  16. ACETAMINOPHEN [Concomitant]
  17. FLUOCINONIDE [Concomitant]

REACTIONS (1)
  - GASTROINTESTINAL DISORDER [None]
